FAERS Safety Report 13996052 (Version 1)
Quarter: 2017Q3

REPORT INFORMATION
  Report Type: Spontaneous
  Country: US (occurrence: US)
  Receive Date: 20170921
  Receipt Date: 20170921
  Transmission Date: 20171128
  Serious: No
  Sender: FDA-Public Use
  Company Number: US-AMARIN PHARMA, INC.-2016AMR000228

PATIENT
  Sex: 0

DRUGS (1)
  1. VASCEPA [Suspect]
     Active Substance: ICOSAPENT ETHYL
     Indication: PRODUCT USED FOR UNKNOWN INDICATION
     Route: 065

REACTIONS (7)
  - Blood glucose increased [Unknown]
  - Pain [Unknown]
  - Fatigue [Unknown]
  - Sebaceous gland disorder [Unknown]
  - Pollakiuria [Unknown]
  - Musculoskeletal stiffness [Unknown]
  - General symptom [Unknown]
